FAERS Safety Report 18100724 (Version 2)
Quarter: 2020Q3

REPORT INFORMATION
  Report Type: Report from Study
  Country: US (occurrence: US)
  Receive Date: 20200731
  Receipt Date: 20200820
  Transmission Date: 20201103
  Serious: Yes (Hospitalization)
  Sender: FDA-Public Use
  Company Number: US-ACTELION-A-NJ2020-200253

PATIENT
  Sex: Female
  Weight: 106.58 kg

DRUGS (3)
  1. OFEV [Suspect]
     Active Substance: NINTEDANIB
     Indication: PRODUCT USED FOR UNKNOWN INDICATION
     Dosage: UNK, QD
     Route: 065
  2. NIFEDIPINE. [Concomitant]
     Active Substance: NIFEDIPINE
  3. OPSUMIT [Suspect]
     Active Substance: MACITENTAN
     Indication: PULMONARY HYPERTENSION
     Dosage: 10 MG, QD
     Route: 048

REACTIONS (16)
  - Skin discolouration [Unknown]
  - Pain of skin [Unknown]
  - Insomnia [Unknown]
  - Pain [Unknown]
  - Hemiparesis [Unknown]
  - Cardiac murmur [Unknown]
  - Gastrooesophageal reflux disease [Unknown]
  - Cough [Unknown]
  - Product dose omission issue [Unknown]
  - Skin exfoliation [Unknown]
  - Unevaluable event [Unknown]
  - Scleroderma [Unknown]
  - Abdominal pain upper [Unknown]
  - Cerebrovascular accident [Unknown]
  - Abdominal discomfort [Unknown]
  - Erythema [Unknown]
